FAERS Safety Report 11052012 (Version 1)
Quarter: 2015Q2

REPORT INFORMATION
  Report Type: Spontaneous
  Country: US (occurrence: US)
  Receive Date: 20150421
  Receipt Date: 20150421
  Transmission Date: 20150821
  Serious: Yes (Other)
  Sender: FDA-Public Use
  Company Number: US-JAZZ-2012-307

PATIENT
  Age: 47 Year
  Sex: Female

DRUGS (16)
  1. MORPHINE SULFATE. [Suspect]
     Active Substance: MORPHINE SULFATE
     Indication: PAIN
     Dosage: 0.54 MG, QH
     Route: 037
  2. VALIUM [Concomitant]
     Active Substance: DIAZEPAM
     Dosage: 5 MG, TID
  3. PRIALT [Suspect]
     Active Substance: ZICONOTIDE ACETATE
     Indication: SPINAL FUSION SURGERY
  4. PRIALT [Suspect]
     Active Substance: ZICONOTIDE ACETATE
     Indication: INTERVERTEBRAL DISC DEGENERATION
  5. AVINZA [Concomitant]
     Active Substance: MORPHINE SULFATE
  6. ZANAFLEX [Concomitant]
     Active Substance: TIZANIDINE HYDROCHLORIDE
  7. MORPHINE SULFATE. [Suspect]
     Active Substance: MORPHINE SULFATE
     Indication: INTERVERTEBRAL DISC DEGENERATION
  8. PRIALT [Suspect]
     Active Substance: ZICONOTIDE ACETATE
     Indication: PAIN
     Dosage: 0.01 ?G, QH
     Route: 037
     Dates: start: 20090407, end: 200905
  9. RELPAX [Concomitant]
     Active Substance: ELETRIPTAN HYDROBROMIDE
     Dosage: 40 MG, PRN
  10. FENADINE [Concomitant]
     Dosage: 12.5 MG, TID
  11. OXYCONTIN [Concomitant]
     Active Substance: OXYCODONE HYDROCHLORIDE
     Dosage: 5 MG, TID
  12. OXYCODONE AND ACETAMINOPHEN [Concomitant]
     Active Substance: ACETAMINOPHEN\OXYCODONE\OXYCODONE HYDROCHLORIDE
  13. BACLOFEN. [Concomitant]
     Active Substance: BACLOFEN
  14. MORPHINE SULFATE. [Suspect]
     Active Substance: MORPHINE SULFATE
     Indication: SPINAL FUSION SURGERY
  15. NEURONTIN [Concomitant]
     Active Substance: GABAPENTIN
     Dosage: 300 MG, QID
  16. EFFEXOR [Concomitant]
     Active Substance: VENLAFAXINE HYDROCHLORIDE

REACTIONS (27)
  - Loss of consciousness [Recovered/Resolved]
  - Chest pain [Unknown]
  - Migraine [Unknown]
  - Feeling abnormal [Unknown]
  - Vomiting [Unknown]
  - Burning sensation [Unknown]
  - Catatonia [Recovered/Resolved]
  - Overdose [Unknown]
  - Fall [Unknown]
  - Tremor [Unknown]
  - Sleep disorder [Recovered/Resolved]
  - Transient ischaemic attack [Unknown]
  - Hallucination [Recovered/Resolved]
  - Thinking abnormal [Recovered/Resolved]
  - Dysarthria [Unknown]
  - Amnesia [Recovered/Resolved]
  - Abdominal pain upper [Unknown]
  - Social avoidant behaviour [Unknown]
  - Somnolence [Unknown]
  - Drug withdrawal syndrome [Unknown]
  - Delirium [Recovered/Resolved]
  - Blood pressure decreased [Unknown]
  - Rotator cuff syndrome [Unknown]
  - Diarrhoea [Unknown]
  - Coordination abnormal [Unknown]
  - Confusional state [Unknown]
  - Sensory disturbance [Unknown]

NARRATIVE: CASE EVENT DATE: 200904
